FAERS Safety Report 4309760-1 (Version None)
Quarter: 2004Q1

REPORT INFORMATION
  Report Type: 
  Country: None (occurrence: None)
  Receive Date: 20040301
  Receipt Date: 20040218
  Transmission Date: 20041129
  Serious: Yes (Other)
  Sender: FDA-Public Use
  Company Number: 2004010782

PATIENT
  Sex: Female

DRUGS (31)
  1. NEURONTIN [Suspect]
     Indication: NEUROPATHIC PAIN
     Dosage: 1200 MG (QID), ORAL
     Route: 048
  2. ALL OTHER THERAPEUTIC PRODUCTS [Suspect]
     Indication: PAIN
  3. HYDROMORPHONE HCL [Concomitant]
  4. POTASSIUM CHLORIDE [Concomitant]
  5. INSULIN GLARGINE (INSULIN GLARGINE) [Concomitant]
  6. INSULIN LISPRO (INSULIN LISPRO) [Concomitant]
  7. ATORVASTATIN CALCIUM [Concomitant]
  8. MAGNESIUM (MAGNESIUM) [Concomitant]
  9. OMEPRAZOLE [Concomitant]
  10. OXYCODONE HCL [Concomitant]
  11. PENTOXIFYLLINE [Concomitant]
  12. PREDNISONE [Concomitant]
  13. TORSEMIDE [Concomitant]
  14. CALCIUM CARBONATE (CALCIUM CARBONATE) [Concomitant]
  15. ACETAMINOPHEN [Concomitant]
  16. ASCORBIC ACID [Concomitant]
  17. TOCOPHEROL CONCENTRATE CAP [Concomitant]
  18. WARFARIN SODIUM [Concomitant]
  19. METOLAZONE [Concomitant]
  20. CETIRIZINE HCL [Concomitant]
  21. ALLOPURINOL [Concomitant]
  22. DARBEPOETIN ALFA (DARBEPOETIN ALFA) [Concomitant]
  23. DIPHENHYDRAMINE HCL [Concomitant]
  24. CALCITROL (ERGOCALCIFEROL, RETINOL, CALCIUM CARBONATE) [Concomitant]
  25. MYCOPHENOLATE MOFETIL (MYCOPHENOLATE MOFETIL) [Concomitant]
  26. CLONAZEPAM [Concomitant]
  27. COLCHICINE (COLCHICINE) [Concomitant]
  28. LOSARTAN POTASSIUM (LOSARTAN POTASSIUM) [Concomitant]
  29. FOLIC ACID [Concomitant]
  30. FUROSEMIDE [Concomitant]
  31. AMITRIPTYLINE HCL [Concomitant]

REACTIONS (2)
  - CHROMATOPSIA [None]
  - PAIN [None]
